FAERS Safety Report 8922526 (Version 1)
Quarter: 2012Q4

REPORT INFORMATION
  Report Type: Spontaneous
  Country: ES (occurrence: None)
  Receive Date: 20121109
  Receipt Date: 20121109
  Transmission Date: 20130627
  Serious: Yes (Hospitalization)
  Sender: FDA-Public Use
  Company Number: 2012S1000737

PATIENT
  Age: 33 Year
  Sex: Female

DRUGS (5)
  1. CUBICIN [Suspect]
     Indication: ENDOCARDITIS INFECTIVE
     Route: 042
  2. VANCOMYCIN [Concomitant]
  3. GENTAMICIN [Concomitant]
  4. RIFAMPIN [Concomitant]
  5. TIGECYCLINE [Concomitant]

REACTIONS (1)
  - Myopathy [None]
